FAERS Safety Report 7259344-0 (Version None)
Quarter: 2011Q1

REPORT INFORMATION
  Report Type: 
  Country: None (occurrence: None)
  Receive Date: 20110129
  Receipt Date: 20100823
  Transmission Date: 20110831
  Serious: No
  Sender: FDA-Public Use
  Company Number: US-ABBOTT-10P-163-0665790-00

PATIENT
  Age: 64 Year
  Sex: Female

DRUGS (11)
  1. DIOVAN HCT [Concomitant]
     Indication: HYPERTENSION
     Dosage: 160/25MG DAILY
  2. ALLEGRA [Concomitant]
     Indication: HYPERSENSITIVITY
  3. FLONASE [Concomitant]
     Indication: HYPERSENSITIVITY
     Route: 055
  4. HUMIRA [Suspect]
     Indication: RHEUMATOID ARTHRITIS
     Dates: start: 20100809
  5. HYDROCODONE [Concomitant]
     Indication: PAIN
  6. ZETIA [Concomitant]
     Indication: BLOOD CHOLESTEROL INCREASED
  7. PREDNISONE [Concomitant]
     Indication: PRODUCT USED FOR UNKNOWN INDICATION
     Dosage: 10 MG DAILY DOSE
  8. IBUPROFEN [Concomitant]
     Indication: MUSCULOSKELETAL STIFFNESS
  9. NORVASC [Concomitant]
     Indication: HYPERTENSION
  10. NIASPAN [Concomitant]
     Indication: BLOOD CHOLESTEROL INCREASED
  11. SINGULAIR [Concomitant]
     Indication: HYPERSENSITIVITY

REACTIONS (3)
  - HYPERSENSITIVITY [None]
  - INCREASED VISCOSITY OF BRONCHIAL SECRETION [None]
  - DYSPNOEA [None]
